FAERS Safety Report 13274320 (Version 1)
Quarter: 2017Q1

REPORT INFORMATION
  Report Type: Spontaneous
  Country: US (occurrence: US)
  Receive Date: 20170227
  Receipt Date: 20170227
  Transmission Date: 20170428
  Serious: Yes (Other)
  Sender: FDA-Public Use
  Company Number: US-TEVA-743118USA

PATIENT
  Age: 58 Year
  Sex: Male

DRUGS (2)
  1. BLEOMYCIN [Suspect]
     Active Substance: BLEOMYCIN SULFATE
     Indication: MALFORMATION VENOUS
     Route: 050
  2. ALCOHOL. [Suspect]
     Active Substance: ALCOHOL
     Indication: MALFORMATION VENOUS
     Route: 050

REACTIONS (2)
  - Tongue oedema [Unknown]
  - Respiratory tract oedema [Unknown]
